FAERS Safety Report 22261520 (Version 1)
Quarter: 2023Q2

REPORT INFORMATION
  Report Type: Spontaneous
  Country: US (occurrence: US)
  Receive Date: 20230427
  Receipt Date: 20230427
  Transmission Date: 20230722
  Serious: No
  Sender: FDA-Public Use
  Company Number: US-ELI_LILLY_AND_COMPANY-US202304011055

PATIENT
  Sex: Female

DRUGS (10)
  1. CYMBALTA [Suspect]
     Active Substance: DULOXETINE HYDROCHLORIDE
     Indication: Major depression
     Dosage: 60 MG, BID
     Route: 048
  2. CYMBALTA [Suspect]
     Active Substance: DULOXETINE HYDROCHLORIDE
     Indication: Post-traumatic stress disorder
  3. ABILIFY [Concomitant]
     Active Substance: ARIPIPRAZOLE
     Indication: Major depression
  4. ABILIFY [Concomitant]
     Active Substance: ARIPIPRAZOLE
     Indication: Post-traumatic stress disorder
  5. LAMICTAL [Concomitant]
     Active Substance: LAMOTRIGINE
     Indication: Major depression
  6. LAMICTAL [Concomitant]
     Active Substance: LAMOTRIGINE
     Indication: Post-traumatic stress disorder
  7. ATORVASTATIN [Concomitant]
     Active Substance: ATORVASTATIN
     Indication: Product used for unknown indication
     Dosage: UNK UNK, UNKNOWN
  8. METFORMIN [Concomitant]
     Active Substance: METFORMIN HYDROCHLORIDE
     Indication: Diabetes mellitus
     Dosage: UNK UNK, UNKNOWN
  9. INSULIN NOS [Concomitant]
     Active Substance: INSULIN NOS
     Indication: Diabetes mellitus
  10. TRESIBA [Concomitant]
     Active Substance: INSULIN DEGLUDEC
     Indication: Diabetes mellitus
     Dosage: UNK UNK, UNKNOWN

REACTIONS (5)
  - Arthropathy [Unknown]
  - Intervertebral disc degeneration [Unknown]
  - Osteoarthritis [Unknown]
  - Exostosis [Unknown]
  - Depression [Unknown]
